FAERS Safety Report 15151420 (Version 4)
Quarter: 2019Q3

REPORT INFORMATION
  Report Type: Report from Study
  Country: US (occurrence: US)
  Receive Date: 20180716
  Receipt Date: 20190717
  Transmission Date: 20191004
  Serious: Yes (Hospitalization)
  Sender: FDA-Public Use
  Company Number: US-ACTELION-A-NJ2017-155996

PATIENT
  Sex: Female
  Weight: 61.22 kg

DRUGS (6)
  1. ADEMPAS [Concomitant]
     Active Substance: RIOCIGUAT
  2. VELETRI [Suspect]
     Active Substance: EPOPROSTENOL
     Indication: PULMONARY HYPERTENSION
     Dosage: 6 NG/KG, UNK
     Route: 042
  3. VELETRI [Suspect]
     Active Substance: EPOPROSTENOL
     Dosage: 12 NG/KG, PER MIN
     Route: 042
  4. XARELTO [Concomitant]
     Active Substance: RIVAROXABAN
  5. VELETRI [Suspect]
     Active Substance: EPOPROSTENOL
     Dosage: 30 NG/KG, PER MIN
     Route: 042
  6. AMLODIPINE [Concomitant]
     Active Substance: AMLODIPINE BESYLATE

REACTIONS (7)
  - Malaise [Unknown]
  - Dyspnoea exertional [Not Recovered/Not Resolved]
  - Constipation [Unknown]
  - Heart rate abnormal [Unknown]
  - Pain in jaw [Unknown]
  - Palpitations [Not Recovered/Not Resolved]
  - Abdominal distension [Not Recovered/Not Resolved]
